FAERS Safety Report 8636967 (Version 2)
Quarter: 2012Q4

REPORT INFORMATION
  Report Type: 
  Country: US (occurrence: US)
  Receive Date: 20120626
  Receipt Date: 20120912
  Transmission Date: 20130627
  Serious: No
  Sender: FDA-Public Use
  Company Number: US-TEVA-340471USA

PATIENT
  Age: 61 Year
  Sex: Male
  Weight: 89.44 kg

DRUGS (1)
  1. QNASL [Suspect]
     Dosage: 320 mcg
     Dates: start: 20120522

REACTIONS (3)
  - Drug ineffective [Not Recovered/Not Resolved]
  - Throat irritation [Not Recovered/Not Resolved]
  - Dizziness [Not Recovered/Not Resolved]
